FAERS Safety Report 5201216-7 (Version None)
Quarter: 2007Q1

REPORT INFORMATION
  Report Type: 
  Country: None (occurrence: None)
  Receive Date: 20070103
  Receipt Date: 20061215
  Transmission Date: 20070707
  Serious: Yes (Hospitalization)
  Sender: FDA-Public Use
  Company Number: S06-FRA-05415-01

PATIENT
  Age: 89 Year
  Sex: Female

DRUGS (2)
  1. EBIXA (MEMANTINE) [Suspect]
     Indication: DEMENTIA ALZHEIMER'S TYPE
     Dosage: 10 MG BID PO
     Route: 048
     Dates: start: 20050101, end: 20060101
  2. TRANSIPEG (MACROGOL) [Concomitant]

REACTIONS (4)
  - BRADYCARDIA [None]
  - HYPERTENSION [None]
  - SYNCOPE [None]
  - VENTRICULAR HYPERTROPHY [None]
